FAERS Safety Report 17489134 (Version 1)
Quarter: 2020Q1

REPORT INFORMATION
  Report Type: Spontaneous
  Country: US (occurrence: US)
  Receive Date: 20200303
  Receipt Date: 20200303
  Transmission Date: 20200409
  Serious: Yes (Life-Threatening)
  Sender: FDA-Public Use
  Company Number: None

PATIENT
  Age: 88 Year
  Sex: Male
  Weight: 70 kg

DRUGS (4)
  1. PIPERACILLIN/ TAZOBACTAM [Concomitant]
     Active Substance: PIPERACILLIN SODIUM\TAZOBACTAM SODIUM
     Dates: start: 20200209, end: 20200228
  2. HYDRALAZINE [Concomitant]
     Active Substance: HYDRALAZINE HYDROCHLORIDE
     Dates: start: 20200214
  3. IVERMECTIN. [Suspect]
     Active Substance: IVERMECTIN
     Indication: LICE INFESTATION
     Dosage: ?          OTHER FREQUENCY:ONCE;?
     Route: 048
     Dates: start: 20200215, end: 20200225
  4. FUROSEMIDE. [Concomitant]
     Active Substance: FUROSEMIDE
     Dates: start: 20200209

REACTIONS (5)
  - Stevens-Johnson syndrome [None]
  - Acute respiratory failure [None]
  - Acute kidney injury [None]
  - Toxic epidermal necrolysis [None]
  - Pneumonia aspiration [None]

NARRATIVE: CASE EVENT DATE: 20200301
